FAERS Safety Report 9233378 (Version 1)
Quarter: 2013Q1

REPORT INFORMATION
  Report Type: Spontaneous
  Country: US (occurrence: None)
  Receive Date: 20121031
  Receipt Date: 20121031
  Transmission Date: 20140127
  Serious: No
  Sender: FDA-Public Use
  Company Number: PHEH2012US014395

PATIENT
  Age: 49 Year
  Sex: Female
  Weight: 71.2 kg

DRUGS (5)
  1. GILENYA (FTY) CAPSULE, 0.5MG [Suspect]
     Indication: MULTIPLE SCLEROSIS
     Route: 048
     Dates: start: 201106, end: 201206
  2. VITAMIN D (ERGOCALCIFEROL) [Concomitant]
  3. MVI (VITAMINS NOS) [Concomitant]
  4. VITAMIN E (TOCOPHEROL) [Concomitant]
  5. VITAMIN B12 (CYANOCOBALAMIN) [Concomitant]

REACTIONS (4)
  - Pain in extremity [None]
  - Fungal infection [None]
  - Cystitis [None]
  - Leukopenia [None]
